FAERS Safety Report 17739769 (Version 1)
Quarter: 2020Q2

REPORT INFORMATION
  Report Type: Spontaneous
  Country: US (occurrence: US)
  Receive Date: 20200501
  Receipt Date: 20200501
  Transmission Date: 20200714
  Serious: No
  Sender: FDA-Public Use
  Company Number: None

PATIENT
  Age: 59 Year
  Sex: Female
  Weight: 54.43 kg

DRUGS (6)
  1. PROGESTO-OIL [Concomitant]
  2. VITAMIN D3 [Concomitant]
     Active Substance: CHOLECALCIFEROL
  3. MEGAFOOD BLOOD BUILDER IRON SUPPLEMENT [Concomitant]
     Active Substance: DIETARY SUPPLEMENT
  4. EZETIMIBE. [Concomitant]
     Active Substance: EZETIMIBE
  5. REPATHA [Suspect]
     Active Substance: EVOLOCUMAB
     Indication: TYPE IIA HYPERLIPIDAEMIA
     Dosage: GIVEN INTO/UNDER THE SKIN
     Dates: start: 20200410
  6. MELATONIN [Concomitant]
     Active Substance: MELATONIN

REACTIONS (3)
  - Product complaint [None]
  - Needle issue [None]
  - Injection site pain [None]

NARRATIVE: CASE EVENT DATE: 20200424
